FAERS Safety Report 24314829 (Version 1)
Quarter: 2024Q3

REPORT INFORMATION
  Report Type: Spontaneous
  Country: IT (occurrence: IT)
  Receive Date: 20240913
  Receipt Date: 20240913
  Transmission Date: 20241017
  Serious: Yes (Life-Threatening, Hospitalization)
  Sender: JOHNSON AND JOHNSON
  Company Number: None

PATIENT
  Age: 74 Year
  Sex: Male

DRUGS (6)
  1. ERLEADA [Suspect]
     Active Substance: APALUTAMIDE
     Indication: Prostate cancer metastatic
     Dosage: APALUTAMIDE 240 MG/DAY CONTINUOUSLY EVERY DAY
     Route: 048
     Dates: start: 20240626, end: 20240730
  2. CHOLECALCIFEROL [Concomitant]
     Active Substance: CHOLECALCIFEROL
     Indication: Product used for unknown indication
     Route: 065
  3. LEUPROLIDE ACETATE [Concomitant]
     Active Substance: ISOPROPYL ALCOHOL\LEUPROLIDE ACETATE
     Indication: Product used for unknown indication
     Route: 065
  4. PROLIA [Concomitant]
     Active Substance: DENOSUMAB
     Indication: Product used for unknown indication
     Route: 065
  5. AZOR [Concomitant]
     Active Substance: AMLODIPINE BESYLATE\OLMESARTAN MEDOXOMIL
     Indication: Product used for unknown indication
     Route: 065
  6. LUCEN [ESOMEPRAZOLE SODIUM] [Concomitant]
     Indication: Product used for unknown indication
     Route: 065

REACTIONS (8)
  - Anuria [Recovering/Resolving]
  - Pyrexia [Recovering/Resolving]
  - Oedema [Recovering/Resolving]
  - Rash maculo-papular [Recovering/Resolving]
  - Neutropenia [Recovering/Resolving]
  - Acute kidney injury [Recovering/Resolving]
  - Leukopenia [Recovering/Resolving]
  - Asthenia [Recovering/Resolving]

NARRATIVE: CASE EVENT DATE: 20240730
